FAERS Safety Report 8681072 (Version 3)
Quarter: 2012Q4

REPORT INFORMATION
  Report Type: 
  Country: RO (occurrence: RO)
  Receive Date: 20120724
  Receipt Date: 20120911
  Transmission Date: 20130627
  Serious: Yes (Hospitalization, Other)
  Sender: FDA-Public Use
  Company Number: RO-ELI_LILLY_AND_COMPANY-RO201207005206

PATIENT
  Age: 61 Year
  Sex: Female
  Weight: 89.6 kg

DRUGS (5)
  1. HUMALOG [Suspect]
     Indication: TYPE 2 DIABETES MELLITUS
     Dosage: 54 u, qd
     Dates: start: 20100122
  2. INSULIN GLARGINE [Concomitant]
     Indication: TYPE 2 DIABETES MELLITUS
     Dosage: 40 u, qd
     Dates: start: 20090914
  3. METFORMIN [Concomitant]
     Indication: TYPE 2 DIABETES MELLITUS
     Dosage: 1000 mg, qd
     Dates: start: 20090914
  4. AMLODIPINA                         /00972401/ [Concomitant]
     Dosage: 5 mg, qd
  5. VALSARTAN [Concomitant]
     Dosage: 160 mg, qd

REACTIONS (5)
  - Cholelithiasis [Recovered/Resolved]
  - Cholecystitis infective [Recovered/Resolved]
  - Peritonitis [Unknown]
  - Hepatomegaly [Unknown]
  - Nephrolithiasis [Unknown]
